FAERS Safety Report 10136260 (Version 2)
Quarter: 2014Q2

REPORT INFORMATION
  Report Type: Spontaneous
  Country: PT (occurrence: PT)
  Receive Date: 20140429
  Receipt Date: 20140513
  Transmission Date: 20141212
  Serious: Yes (Death, Hospitalization)
  Sender: FDA-Public Use
  Company Number: PT-AMGEN INC.-PRTSP2014030523

PATIENT
  Age: 58 Year
  Sex: Female

DRUGS (3)
  1. ENBREL [Suspect]
     Indication: RHEUMATOID ARTHRITIS
     Dosage: 50 MG, WEEKLY
     Route: 065
     Dates: start: 200003
  2. LEFLUNOMIDE [Concomitant]
     Dosage: 20 MG, UNK
  3. NIFEDIPINE [Concomitant]
     Dosage: 30 MG, UNK

REACTIONS (1)
  - Haemorrhagic stroke [Fatal]
